FAERS Safety Report 11278708 (Version 1)
Quarter: 2015Q3

REPORT INFORMATION
  Report Type: Spontaneous
  Country: None (occurrence: None)
  Receive Date: 20150716
  Receipt Date: 20150716
  Transmission Date: 20151125
  Serious: Yes (Other)
  Sender: FDA-Public Use
  Company Number: None

PATIENT
  Age: 20 Year
  Sex: Male
  Weight: 134.27 kg

DRUGS (2)
  1. RISPERDAL [Suspect]
     Active Substance: RISPERIDONE
     Indication: SCHIZOPHRENIA, PARANOID TYPE
     Dosage: START DATE OF DRUGS WAS LISTED AT 2000
     Dates: end: 2015
  2. TOPAMAX [Suspect]
     Active Substance: TOPIRAMATE
     Indication: BIPOLAR DISORDER
     Dosage: START DATE IS LISTED AT 2000
     Dates: end: 2015

REACTIONS (7)
  - Gynaecomastia [None]
  - Hypertension [None]
  - Dyslipidaemia [None]
  - Suicidal ideation [None]
  - Weight increased [None]
  - Homicidal ideation [None]
  - Erectile dysfunction [None]

NARRATIVE: CASE EVENT DATE: 199810
